FAERS Safety Report 8465548-1 (Version None)
Quarter: 2012Q2

REPORT INFORMATION
  Report Type: 
  Country: None (occurrence: None)
  Receive Date: 20120626
  Receipt Date: 20120614
  Transmission Date: 20120825
  Serious: Yes (Other)
  Sender: FDA-Public Use
  Company Number: US-BAYER-2012-058310

PATIENT
  Age: 73 Year
  Sex: Female
  Weight: 88.435 kg

DRUGS (1)
  1. ALEVE (CAPLET) [Suspect]
     Indication: ARTHRITIS
     Dosage: TAKING EVERYDAY FOR ABOUT 1 TO 2 MONTHS.
     Route: 048

REACTIONS (1)
  - HYPERTENSION [None]
